FAERS Safety Report 9349600 (Version 3)
Quarter: 2014Q1

REPORT INFORMATION
  Report Type: Report from Study
  Country: JP (occurrence: JP)
  Receive Date: 20130614
  Receipt Date: 20140204
  Transmission Date: 20141002
  Serious: Yes (Other)
  Sender: FDA-Public Use
  Company Number: JP-009507513-1305JPN007473

PATIENT
  Age: 38 Year
  Sex: Female
  Weight: 49 kg

DRUGS (7)
  1. GANIRELIX ACETATE [Suspect]
     Indication: PREVENTION OF PREMATURE OVULATION
     Dosage: 0.25 MG, QD, STRENGTH-0.25MG
     Route: 058
     Dates: start: 20110120, end: 20110121
  2. FOLLISTIM INJECTION 300IU CARTRIDGES [Suspect]
     Indication: IN VITRO FERTILISATION
     Dosage: 300 UNDER 1000 UNIT, QD
     Route: 058
     Dates: start: 20110115, end: 20110116
  3. FOLLISTIM INJECTION 300IU CARTRIDGES [Suspect]
     Dosage: 150 UNDER 1000 UNIT, QD
     Route: 058
     Dates: start: 20110117, end: 20110119
  4. HCG [Concomitant]
     Indication: OVULATION INDUCTION
     Dosage: 5 THOUSAND MILLION UNIT, QD
     Route: 030
     Dates: start: 20110122, end: 20110122
  5. HCG [Concomitant]
     Indication: IN VITRO FERTILISATION
  6. HMG [Concomitant]
     Indication: IN VITRO FERTILISATION
     Dosage: 150(UNDER1000UNIT), QD
     Route: 030
     Dates: start: 20110120, end: 20110122
  7. TELURON [Concomitant]
     Indication: IN VITRO FERTILISATION
     Dosage: 0.5 MG, QD, FORMULATION: POR
     Route: 048
     Dates: start: 20101228, end: 20110402

REACTIONS (2)
  - Foetal death [Unknown]
  - Exposure during pregnancy [Recovered/Resolved]
